FAERS Safety Report 16031690 (Version 7)
Quarter: 2023Q4

REPORT INFORMATION
  Report Type: Spontaneous
  Country: BR (occurrence: BR)
  Receive Date: 20190304
  Receipt Date: 20231228
  Transmission Date: 20240110
  Serious: Yes (Disabling, Other)
  Sender: FDA-Public Use
  Company Number: BR-PFIZER INC-2013003516

PATIENT
  Sex: Male
  Weight: 76 kg

DRUGS (27)
  1. LYRICA [Suspect]
     Active Substance: PREGABALIN
     Indication: Neuralgia
     Dosage: 600 MILLIGRAM, BID (600 MG, 2X/DAY (4 CAPSULES OF 150MG EVERY 12 HOURS))
     Route: 048
     Dates: start: 2012
  2. LYRICA [Suspect]
     Active Substance: PREGABALIN
     Indication: Bursitis
     Dosage: 75 MILLIGRAM, QD (75 MG, 1X/DAY)
     Route: 048
  3. LYRICA [Suspect]
     Active Substance: PREGABALIN
     Indication: Pain in extremity
     Dosage: 150 MILLIGRAM, QD (150MG 1X/DAY)
     Route: 048
     Dates: start: 201210
  4. LYRICA [Suspect]
     Active Substance: PREGABALIN
     Dosage: 225 MILLIGRAM, QD (225MG 1X/DAY)
     Route: 048
  5. LYRICA [Suspect]
     Active Substance: PREGABALIN
     Dosage: 300 MILLIGRAM, QD (300 MG, 1X/DAY)
     Route: 048
  6. LYRICA [Suspect]
     Active Substance: PREGABALIN
     Dosage: 300 MILLIGRAM, BID (300 MG, 2X/DAY)
     Route: 048
  7. LYRICA [Suspect]
     Active Substance: PREGABALIN
     Dosage: UNK
     Route: 048
  8. LYRICA [Suspect]
     Active Substance: PREGABALIN
     Dosage: 600 MILLIGRAM, QD (600 MG, DAILY)
     Route: 048
     Dates: start: 2014
  9. LYRICA [Suspect]
     Active Substance: PREGABALIN
     Dosage: 600 MG
     Route: 048
  10. LYRICA [Suspect]
     Active Substance: PREGABALIN
     Dosage: 450 MG, DAILY (2 CAPSULES OF 75MG AND 2 CAPSULES OF 150MG)
     Route: 048
  11. LYRICA [Suspect]
     Active Substance: PREGABALIN
     Dosage: 450 MG, DAILY (2 CAPSULES OF 75MG AND 2 CAPSULES OF 150MG)
     Route: 048
  12. LYRICA [Suspect]
     Active Substance: PREGABALIN
     Dosage: 75 MILLIGRAM, BID
     Route: 048
  13. LYRICA [Suspect]
     Active Substance: PREGABALIN
     Dosage: 150 MILLIGRAM, BID
     Route: 048
  14. AMITRIPTYLINE HYDROCHLORIDE [Suspect]
     Active Substance: AMITRIPTYLINE HYDROCHLORIDE
     Indication: Neuralgia
     Dosage: 25 MILLIGRAM, QD (25 MG, 1X/DAY AT ONE TABLET (AT NIGHT, BEFORE SLEEPING) REGIMEN DOSE UNIT: MILLIGR
     Route: 065
  15. ARAVA [Concomitant]
     Active Substance: LEFLUNOMIDE
     Indication: Rheumatoid arthritis
     Dosage: UNK
     Route: 065
     Dates: start: 201103
  16. PRELONE [Concomitant]
     Active Substance: PREDNISOLONE
     Indication: Rheumatoid arthritis
     Dosage: 5 MILLIGRAM, QD (5 MG, DAILY)
     Route: 065
     Dates: start: 2011
  17. PRELONE [Concomitant]
     Active Substance: PREDNISOLONE
     Indication: Arthritis
  18. ATENOLOL [Concomitant]
     Active Substance: ATENOLOL
     Indication: Blood pressure increased
     Dosage: 25 MILLIGRAM, QD (25 MG, DAILY)
     Route: 065
     Dates: start: 1983
  19. ENBREL [Concomitant]
     Active Substance: ETANERCEPT
     Indication: Rheumatoid arthritis
     Dosage: 50 MILLIGRAM, QW (50 MG, WEEKLY)
     Route: 058
     Dates: start: 201509
  20. ENBREL [Concomitant]
     Active Substance: ETANERCEPT
     Indication: Arthritis
  21. HYDROCHLOROTHIAZIDE\VALSARTAN [Concomitant]
     Active Substance: HYDROCHLOROTHIAZIDE\VALSARTAN
     Indication: Blood pressure increased
     Dosage: 2.5 MILLIGRAM, BID (2.5 MG, 2X/DAY REGIMEN DOSE UNIT: MILLIGRAM)
     Route: 065
     Dates: start: 201408
  22. AMLODIPINE BESYLATE [Concomitant]
     Active Substance: AMLODIPINE BESYLATE
     Indication: Blood pressure increased
     Dosage: 2.5 MILLIGRAM, QD (2.5 MG, DAILY)
     Route: 065
  23. SIMVASTATIN [Concomitant]
     Active Substance: SIMVASTATIN
     Indication: Blood cholesterol abnormal
     Dosage: 40 MILLIGRAM, QD (40 MG, DAILY)
     Route: 065
     Dates: start: 2013
  24. UNSPECIFIED INGREDIENT [Concomitant]
     Active Substance: UNSPECIFIED INGREDIENT
     Indication: Pain
     Dosage: 1 DOSAGE FORM, BID (1 DF, 2X/DAY REGIMEN DOSE UNIT: DOSAGE FORM)
     Route: 065
     Dates: start: 2015
  25. DORZOLAMIDE HYDROCHLORIDE\TIMOLOL MALEATE [Concomitant]
     Active Substance: DORZOLAMIDE HYDROCHLORIDE\TIMOLOL MALEATE
     Indication: Product used for unknown indication
     Dosage: UNK
     Route: 065
  26. DOXAZOSIN MESYLATE [Concomitant]
     Active Substance: DOXAZOSIN MESYLATE
     Indication: Product used for unknown indication
     Dosage: UNK
     Route: 065
     Dates: end: 2015
  27. CHOLECALCIFEROL [Concomitant]
     Active Substance: CHOLECALCIFEROL
     Indication: Product used for unknown indication
     Dosage: 1 DOSAGE FORM, QD (1 DF, DAILY)
     Route: 065

REACTIONS (16)
  - Multiple sclerosis [Not Recovered/Not Resolved]
  - Cataract [Unknown]
  - Overdose [Unknown]
  - Drug dependence [Unknown]
  - Weight increased [Not Recovered/Not Resolved]
  - Drug ineffective [Unknown]
  - Vitamin D decreased [Unknown]
  - Intentional product use issue [Unknown]
  - Photosensitivity reaction [Unknown]
  - Meniscus injury [Unknown]
  - Skeletal injury [Unknown]
  - Claustrophobia [Unknown]
  - Joint swelling [Unknown]
  - Insomnia [Recovered/Resolved]
  - Dizziness [Recovered/Resolved]
  - Pain [Unknown]

NARRATIVE: CASE EVENT DATE: 20120101
